FAERS Safety Report 10970753 (Version 2)
Quarter: 2015Q1

REPORT INFORMATION
  Report Type: Spontaneous
  Country: US (occurrence: None)
  Receive Date: 20150226
  Receipt Date: 20150226
  Transmission Date: 20150721
  Serious: No
  Sender: FDA-Public Use
  Company Number: TPA2010A00655

PATIENT
  Age: 60 Year
  Sex: Male
  Weight: 127.92 kg

DRUGS (1)
  1. ULORIC [Suspect]
     Active Substance: FEBUXOSTAT
     Indication: GOUT
     Route: 048
     Dates: start: 20091228, end: 20100105

REACTIONS (2)
  - Blood creatinine increased [None]
  - Rash macular [None]

NARRATIVE: CASE EVENT DATE: 20091230
